FAERS Safety Report 26106821 (Version 1)
Quarter: 2025Q4

REPORT INFORMATION
  Report Type: Spontaneous
  Country: US (occurrence: US)
  Receive Date: 20251201
  Receipt Date: 20251201
  Transmission Date: 20260118
  Serious: No
  Sender: GILEAD
  Company Number: US-GILEAD-2025-0738259

PATIENT
  Age: 69 Year
  Sex: Female

DRUGS (1)
  1. VEKLURY [Suspect]
     Active Substance: REMDESIVIR
     Indication: Coronavirus infection
     Dosage: UNK
     Route: 065
     Dates: start: 202110

REACTIONS (3)
  - Tissue irritation [Unknown]
  - Injection site inflammation [Unknown]
  - Recalled product administered [Unknown]
